FAERS Safety Report 13698175 (Version 1)
Quarter: 2017Q2

REPORT INFORMATION
  Report Type: Spontaneous
  Country: AU (occurrence: AU)
  Receive Date: 20170628
  Receipt Date: 20170628
  Transmission Date: 20170830
  Serious: Yes (Other)
  Sender: FDA-Public Use
  Company Number: AU-PFIZER INC-2017275759

PATIENT
  Sex: Female

DRUGS (1)
  1. LYRICA [Suspect]
     Active Substance: PREGABALIN
     Indication: BACK PAIN
     Dosage: 150 MG, 2X/DAY
     Dates: start: 201609

REACTIONS (7)
  - Vision blurred [Unknown]
  - Malaise [Unknown]
  - Seizure [Unknown]
  - Anxiety [Unknown]
  - Mental disorder [Unknown]
  - Weight increased [Unknown]
  - Loss of personal independence in daily activities [Unknown]
